FAERS Safety Report 9120137 (Version 1)
Quarter: 2013Q1

REPORT INFORMATION
  Report Type: Spontaneous
  Country: US (occurrence: US)
  Receive Date: 20130226
  Receipt Date: 20130226
  Transmission Date: 20140127
  Serious: Yes (Other)
  Sender: FDA-Public Use
  Company Number: US-COVIDIEN/TYCO HEALTHCARE/MALLINCKRODT-T201300854

PATIENT
  Sex: Female
  Weight: 60.32 kg

DRUGS (3)
  1. ROXICODONE [Suspect]
     Indication: NEURALGIA
     Dosage: 5 MG, TID PRN
     Route: 048
     Dates: start: 201209, end: 201212
  2. OXYCONTIN [Concomitant]
     Indication: NEURALGIA
     Dosage: 20 MG, Q 8 HRS
     Route: 048
  3. CYMBALTA [Concomitant]
     Indication: PAIN
     Dosage: 30 MG, BID
     Route: 048

REACTIONS (10)
  - Suicidal ideation [Recovered/Resolved]
  - Intentional drug misuse [Unknown]
  - Disturbance in attention [Unknown]
  - Malaise [Recovering/Resolving]
  - Weight decreased [Unknown]
  - Activities of daily living impaired [Unknown]
  - Tremor [Not Recovered/Not Resolved]
  - Nausea [Recovering/Resolving]
  - Vomiting [Unknown]
  - Drug ineffective [Recovered/Resolved]
